FAERS Safety Report 23449193 (Version 1)
Quarter: 2024Q1

REPORT INFORMATION
  Report Type: Spontaneous
  Country: US (occurrence: US)
  Receive Date: 20240129
  Receipt Date: 20240129
  Transmission Date: 20240409
  Serious: Yes (Hospitalization)
  Sender: FDA-Public Use
  Company Number: US-STRIDES ARCOLAB LIMITED-2024SP000967

PATIENT
  Age: 67 Year
  Sex: Female

DRUGS (14)
  1. CYCLOSPORINE [Suspect]
     Active Substance: CYCLOSPORINE
     Indication: Pure white cell aplasia
     Dosage: 3 MICROGRAM/KILOGRAM (DIVIDED INTO 2?DAILY DOSES: 150MG IN THE MORNING AND 100MG IN THE EVENING)
     Route: 065
     Dates: start: 2022
  2. METRONIDAZOLE [Suspect]
     Active Substance: METRONIDAZOLE
     Indication: Klebsiella infection
     Dosage: UNK
     Route: 065
     Dates: start: 2022
  3. ACYCLOVIR [Suspect]
     Active Substance: ACYCLOVIR
     Indication: Klebsiella infection
     Dosage: UNK
     Route: 065
     Dates: start: 2022
  4. VANCOMYCIN [Suspect]
     Active Substance: VANCOMYCIN
     Indication: Klebsiella infection
     Dosage: UNK
     Route: 065
     Dates: start: 2022
  5. PREDNISONE [Concomitant]
     Active Substance: PREDNISONE
     Indication: Pure white cell aplasia
     Dosage: 1 MILLIGRAM/KILOGRAM/DAY
     Route: 065
     Dates: start: 2022
  6. PACLITAXEL [Concomitant]
     Active Substance: PACLITAXEL
     Indication: Lung adenocarcinoma
     Dosage: UNK
     Route: 065
  7. CARBOPLATIN [Concomitant]
     Active Substance: CARBOPLATIN
     Indication: Lung adenocarcinoma
     Dosage: UNK
     Route: 065
  8. GABAPENTIN [Concomitant]
     Active Substance: GABAPENTIN
     Indication: Product used for unknown indication
     Dosage: UNK
     Route: 065
     Dates: start: 2022
  9. CEFEPIME [Concomitant]
     Active Substance: CEFEPIME HYDROCHLORIDE
     Indication: Klebsiella infection
     Dosage: UNK
     Route: 065
     Dates: start: 2022
  10. VALACYCLOVIR [Concomitant]
     Active Substance: VALACYCLOVIR HYDROCHLORIDE
     Indication: Klebsiella infection
     Dosage: UNK
     Route: 065
     Dates: start: 2022
  11. MEROPENEM [Concomitant]
     Active Substance: MEROPENEM
     Indication: Klebsiella infection
     Dosage: UNK
     Route: 065
     Dates: start: 2022
  12. CASPOFUNGIN [Concomitant]
     Active Substance: CASPOFUNGIN
     Indication: Klebsiella infection
     Dosage: UNK
     Route: 065
     Dates: start: 2022
  13. FLUCONAZOLE [Concomitant]
     Active Substance: FLUCONAZOLE
     Indication: Klebsiella infection
     Dosage: UNK
     Route: 065
     Dates: start: 2022
  14. FILGRASTIM [Concomitant]
     Active Substance: FILGRASTIM
     Indication: Pure white cell aplasia
     Dosage: 5 MICROGRAM/KILOGRAM, DAILY
     Route: 065
     Dates: start: 2022

REACTIONS (2)
  - Medication error [Unknown]
  - Off label use [Unknown]

NARRATIVE: CASE EVENT DATE: 20220101
